FAERS Safety Report 4483554-9 (Version None)
Quarter: 2004Q4

REPORT INFORMATION
  Report Type: 
  Country: None (occurrence: None)
  Receive Date: 20041021
  Receipt Date: 20041021
  Transmission Date: 20050328
  Serious: No
  Sender: FDA-Public Use
  Company Number: None

PATIENT
  Sex: Female
  Weight: 54.4316 kg

DRUGS (2)
  1. ENBREL [Suspect]
     Indication: PSORIASIS
     Dosage: 25 MG SC TWICE WEEKLY
     Route: 058
     Dates: start: 20040920, end: 20041004
  2. METHOTREXATE [Concomitant]

REACTIONS (3)
  - ANGIOPATHY [None]
  - INJECTION SITE REACTION [None]
  - INJECTION SITE URTICARIA [None]
